FAERS Safety Report 4317647-3 (Version None)
Quarter: 2004Q1

REPORT INFORMATION
  Report Type: 
  Country: None (occurrence: None)
  Receive Date: 20040315
  Receipt Date: 20040302
  Transmission Date: 20041129
  Serious: Yes (Life-Threatening)
  Sender: FDA-Public Use
  Company Number: FI-GLAXOSMITHKLINE-B0325342A

PATIENT
  Age: 75 Year
  Sex: Male

DRUGS (14)
  1. ZINACEF [Suspect]
     Indication: PNEUMONIA
     Dosage: 1.5G PER DAY
     Route: 042
     Dates: start: 20040212, end: 20040212
  2. DIGOXIN [Concomitant]
     Dosage: .25MG PER DAY
     Route: 048
  3. METOPROLOL SUCCINATE [Concomitant]
     Dosage: 47.5MG PER DAY
  4. ISOSORBIDE MONONITRATE [Concomitant]
     Dosage: 20MG TWICE PER DAY
  5. WARFARIN SODIUM [Concomitant]
  6. ZOPICLONE [Concomitant]
     Dosage: 7.5MG PER DAY
  7. PREDNISOLONE [Concomitant]
     Dosage: 5MG PER DAY
  8. TRAMADOL HCL [Concomitant]
     Dosage: 300MG PER DAY
  9. PARACETAMOL [Concomitant]
     Dosage: 3G PER DAY
  10. FERROUS SULFATE TAB [Concomitant]
     Dosage: 1U PER DAY
  11. DEXAMETHASONE [Concomitant]
     Dosage: 3U PER DAY
  12. CHLORAMPHENICOL [Concomitant]
  13. TIMOLOL MALEATE [Concomitant]
     Dosage: 2U PER DAY
  14. PILOCARPINE HYDROCHLORIDE [Concomitant]
     Dosage: 2U PER DAY

REACTIONS (10)
  - ANAPHYLACTIC SHOCK [None]
  - CHEST PAIN [None]
  - COLD SWEAT [None]
  - ELECTROCARDIOGRAM ST SEGMENT DEPRESSION [None]
  - FEELING ABNORMAL [None]
  - HYPOTENSION [None]
  - NAUSEA [None]
  - OXYGEN SATURATION DECREASED [None]
  - PULMONARY OEDEMA [None]
  - URTICARIA [None]
